FAERS Safety Report 8137832-2 (Version None)
Quarter: 2012Q1

REPORT INFORMATION
  Report Type: 
  Country: None (occurrence: None)
  Receive Date: 20120215
  Receipt Date: 20120201
  Transmission Date: 20120608
  Serious: Yes (Hospitalization)
  Sender: FDA-Public Use
  Company Number: KR-MYLANLABS-2012S1002757

PATIENT
  Age: 46 Year
  Sex: Male

DRUGS (2)
  1. AZELASTINE HCL [Suspect]
     Indication: NASOPHARYNGITIS
     Route: 065
  2. NAPROXEN [Suspect]
     Indication: NASOPHARYNGITIS
     Route: 065

REACTIONS (2)
  - OESOPHAGEAL DISORDER [None]
  - OESOPHAGEAL ULCER [None]
